FAERS Safety Report 6080108-8 (Version None)
Quarter: 2009Q1

REPORT INFORMATION
  Report Type: 
  Country: None (occurrence: None)
  Receive Date: 20090217
  Receipt Date: 20090206
  Transmission Date: 20090719
  Serious: Yes (Other)
  Sender: FDA-Public Use
  Company Number: GB-PFIZER INC-2009166662

PATIENT

DRUGS (1)
  1. TOLTERODINE TARTRATE [Suspect]
     Dosage: UNK

REACTIONS (2)
  - HALLUCINATION [None]
  - PARKINSON'S DISEASE [None]
